FAERS Safety Report 9303168 (Version 1)
Quarter: 2013Q2

REPORT INFORMATION
  Report Type: Spontaneous
  Country: US (occurrence: None)
  Receive Date: 20130521
  Receipt Date: 20130521
  Transmission Date: 20140414
  Serious: Yes (Life-Threatening, Hospitalization, Disabling, Other)
  Sender: FDA-Public Use
  Company Number: None

PATIENT
  Sex: Male
  Weight: 68.04 kg

DRUGS (7)
  1. OXYCONTIN [Suspect]
     Indication: INTERVERTEBRAL DISC DEGENERATION
     Dosage: 80 MG 1 PILL THEN UNUSABLE 23 X BY MOUTH
     Route: 048
  2. OXYCOTIN 80 MG [Concomitant]
  3. AMBIEN 10 MG [Concomitant]
  4. ZOLOFT 50 MG [Concomitant]
  5. SERTRALNE 50 MG [Concomitant]
  6. ALPRAZOLAM 20 MG [Concomitant]
  7. PANTOPRAZOLE 40 MG [Concomitant]

REACTIONS (2)
  - Product quality issue [None]
  - Product quality issue [None]
